FAERS Safety Report 16391774 (Version 1)
Quarter: 2019Q2

REPORT INFORMATION
  Report Type: Spontaneous
  Country: IT (occurrence: IT)
  Receive Date: 20190605
  Receipt Date: 20190605
  Transmission Date: 20190711
  Serious: Yes (Hospitalization)
  Sender: FDA-Public Use
  Company Number: IT-TEVA-2019-IT-1059808

PATIENT
  Age: 26 Year
  Sex: Male

DRUGS (3)
  1. OLANZAPINA TEVA [Suspect]
     Active Substance: OLANZAPINE
     Dosage: 20MG
     Dates: end: 20190502
  2. EFEXOR 75 MG CAPSULE RIGIDE A RILASCIO PROLUNGATO [Concomitant]
     Active Substance: VENLAFAXINE HYDROCHLORIDE
     Indication: DEPRESSION
     Route: 048
  3. DELORAZEPAM [Concomitant]
     Active Substance: DELORAZEPAM
     Indication: INSOMNIA
     Dosage: 6MG
     Route: 048

REACTIONS (1)
  - Psychotic disorder [Recovering/Resolving]

NARRATIVE: CASE EVENT DATE: 20190502
